FAERS Safety Report 8776860 (Version 1)
Quarter: 2012Q4

REPORT INFORMATION
  Report Type: 
  Country: JP (occurrence: JP)
  Receive Date: 20120911
  Receipt Date: 20120911
  Transmission Date: 20130627
  Serious: Yes (Other)
  Sender: FDA-Public Use
  Company Number: JP-ABBOTT-12P-087-0965353-00

PATIENT
  Age: 79 Year
  Sex: Male
  Weight: 57 kg

DRUGS (4)
  1. LANSOPRAZOLE [Suspect]
     Indication: ULCER
     Route: 048
     Dates: start: 200809, end: 20081126
  2. LANSOPRAZOLE [Suspect]
     Indication: PROPHYLAXIS
  3. CELECOX [Suspect]
     Indication: SPINAL COLUMN STENOSIS
     Route: 048
     Dates: start: 200809, end: 20081113
  4. BAYASPIRIN [Concomitant]
     Indication: CEREBROVASCULAR DISORDER
     Route: 048

REACTIONS (5)
  - Colitis microscopic [Recovering/Resolving]
  - Anaemia [Unknown]
  - C-reactive protein increased [Unknown]
  - Hypoalbuminaemia [Unknown]
  - Hypokalaemia [Unknown]
